FAERS Safety Report 9745759 (Version 4)
Quarter: 2015Q1

REPORT INFORMATION
  Report Type: Report from Study
  Country: US (occurrence: US)
  Receive Date: 20131211
  Receipt Date: 20150123
  Transmission Date: 20150721
  Serious: Yes (Hospitalization, Other)
  Sender: FDA-Public Use
  Company Number: PHHO2013US015831

PATIENT
  Age: 72 Year
  Sex: Male
  Weight: 114.2 kg

DRUGS (8)
  1. MIDODRINE [Suspect]
     Active Substance: MIDODRINE
     Indication: HYPERTENSION
     Dosage: 5 MG, TID (THREE TIMES DAILY)
     Route: 048
     Dates: start: 20131126
  2. CITALOPRAM [Suspect]
     Active Substance: CITALOPRAM HYDROBROMIDE
     Indication: ANXIETY
     Dosage: 20 MG, DAILY
     Route: 048
     Dates: start: 20120312
  3. BLINDED ERYPO [Suspect]
     Active Substance: UNSPECIFIED INGREDIENT
     Indication: ANAEMIA
     Dosage: CODE NOT BROKEN
     Route: 058
     Dates: start: 20130621
  4. PERCOCET [Suspect]
     Active Substance: ACETAMINOPHEN\OXYCODONE HYDROCHLORIDE
     Indication: PAIN
     Dosage: 10 MG, EVERY SALASY, AS NEEDED
     Route: 048
     Dates: start: 20130415
  5. FLEXERIL [Concomitant]
     Active Substance: CYCLOBENZAPRINE HYDROCHLORIDE
     Indication: PAIN
     Dosage: 10 MG, M,W,F
     Route: 048
     Dates: start: 20120803
  6. EPOETIN ALFA [Suspect]
     Active Substance: ERYTHROPOIETIN
     Indication: ANAEMIA
     Dosage: CODE NOT BROKEN
     Route: 058
     Dates: start: 20130621
  7. BLINDED NO TREATMENT RECEIVED [Suspect]
     Active Substance: UNSPECIFIED INGREDIENT
     Indication: ANAEMIA
     Dosage: CODE NOT BROKEN
     Route: 058
     Dates: start: 20130621
  8. BLINDED ERYPO [Suspect]
     Active Substance: UNSPECIFIED INGREDIENT
     Indication: ANAEMIA
     Dosage: CODE NOT BROKEN
     Route: 058
     Dates: start: 20130621

REACTIONS (2)
  - Hypotension [Recovered/Resolved]
  - Encephalopathy [Recovered/Resolved]

NARRATIVE: CASE EVENT DATE: 20131128
